FAERS Safety Report 5343583-X (Version None)
Quarter: 2007Q2

REPORT INFORMATION
  Report Type: 
  Country: None (occurrence: None)
  Receive Date: 20070416
  Receipt Date: 20070129
  Transmission Date: 20071010
  Serious: No
  Sender: FDA-Public Use
  Company Number: 2007SP000317

PATIENT
  Age: 78 Year
  Sex: Male

DRUGS (2)
  1. LUNESTA [Suspect]
     Indication: SLEEP DISORDER
     Dosage: 1 MG;ORAL
     Route: 048
     Dates: start: 20070125
  2. CASODEX [Concomitant]

REACTIONS (3)
  - DIZZINESS [None]
  - DRUG INEFFECTIVE [None]
  - INSOMNIA [None]
